FAERS Safety Report 9019576 (Version 1)
Quarter: 2013Q1

REPORT INFORMATION
  Report Type: Spontaneous
  Country: US (occurrence: US)
  Receive Date: 20130118
  Receipt Date: 20130118
  Transmission Date: 20140127
  Serious: Yes (Hospitalization)
  Sender: FDA-Public Use
  Company Number: US-SANOFI-AVENTIS-2012SA045125

PATIENT
  Age: 48 Year
  Sex: Female

DRUGS (10)
  1. LASIX [Suspect]
     Indication: PRODUCT USED FOR UNKNOWN INDICATION
     Route: 065
  2. BLINDED THERAPY [Concomitant]
     Indication: TYPE 2 DIABETES MELLITUS
     Dates: start: 20111007, end: 20111207
  3. LANTUS [Concomitant]
     Indication: TYPE 2 DIABETES MELLITUS
     Dosage: DOSE:35 UNIT(S)
     Dates: end: 20111104
  4. LANTUS [Concomitant]
     Indication: TYPE 2 DIABETES MELLITUS
     Dosage: DOSE:45 UNIT(S)
     Dates: start: 20111105, end: 20120306
  5. LANTUS [Concomitant]
     Indication: TYPE 2 DIABETES MELLITUS
     Dosage: DOSE:38 UNIT(S)
     Dates: start: 20120307
  6. HUMULIN [Concomitant]
     Indication: TYPE 2 DIABETES MELLITUS
     Dosage: DOSE:5 UNIT(S)
     Dates: end: 20120213
  7. HUMALOG [Concomitant]
     Indication: TYPE 2 DIABETES MELLITUS
     Dosage: 10UNITS WITH BREAKFAST, 12 UNITS WITH LUNCH, AND 10UNITS WITH DINNER
  8. NPH INSULIN [Concomitant]
     Indication: TYPE 2 DIABETES MELLITUS
     Dosage: DOSE:5 UNIT(S)
  9. JANUVIA [Concomitant]
     Indication: TYPE 2 DIABETES MELLITUS
     Dates: start: 20111208
  10. ALL OTHER THERAPEUTIC PRODUCTS [Concomitant]

REACTIONS (1)
  - Dehydration [Recovered/Resolved]
